FAERS Safety Report 16236387 (Version 5)
Quarter: 2019Q3

REPORT INFORMATION
  Report Type: Report from Study
  Country: KR (occurrence: KR)
  Receive Date: 20190425
  Receipt Date: 20190807
  Transmission Date: 20191004
  Serious: Yes (Hospitalization, Other)
  Sender: FDA-Public Use
  Company Number: KR-009507513-1904KOR009722

PATIENT
  Sex: Female

DRUGS (17)
  1. URSA TABLETS [Concomitant]
     Dosage: QUANTITY 1, DAYS 23
     Route: 048
     Dates: start: 20190401, end: 20190408
  2. TROLAC [Concomitant]
     Dosage: QUANTITY 1, DAYS 1
     Dates: start: 20190402, end: 20190402
  3. SODIUM CHLORIDE. [Concomitant]
     Active Substance: SODIUM CHLORIDE
     Dosage: (CJ) QUANTITY 1, DAYS 6
     Dates: start: 20190401, end: 20190404
  4. ISOTONIC SODIUM CHLORIDE DAIHAN [Concomitant]
     Dosage: (CONCENTRATION: 100ML) QUANTITY 1, DAYS 2
     Dates: start: 20190402, end: 20190402
  5. SODIUM CHLORIDE. [Concomitant]
     Active Substance: SODIUM CHLORIDE
     Dosage: (JW NS) QUANTITY 1, DAYS 1
     Dates: start: 20190402, end: 20190402
  6. PEMBROLIZUMAB. [Suspect]
     Active Substance: PEMBROLIZUMAB
     Dosage: QUANTITY 2, DAYS 1
     Dates: start: 20190523, end: 20190523
  7. PEMBROLIZUMAB. [Suspect]
     Active Substance: PEMBROLIZUMAB
     Dosage: QUANTITY 1, DAYS 1
     Dates: start: 20190713, end: 20190713
  8. DENOGAN [Concomitant]
     Active Substance: PROPACETAMOL HYDROCHLORIDE
     Dosage: QUANTITY 1, DAYS 1
     Dates: start: 20190402, end: 20190402
  9. GODEX (ADENINE HYDROCHLORIDE (+) BIFENDATE (+) CARNITINE OROTATE (+) C [Concomitant]
     Dosage: QUANTITY 1, DAYS 23
     Route: 048
     Dates: start: 20190401, end: 20190408
  10. ISOTONIC SODIUM CHLORIDE DAIHAN [Concomitant]
     Dosage: (CONCENTRATION: 1L) QUANTITY 1, DAYS 7
     Dates: start: 20190401, end: 20190405
  11. PEMBROLIZUMAB. [Suspect]
     Active Substance: PEMBROLIZUMAB
     Dosage: QUANTITY 2, DAYS 1
     Dates: start: 20190614, end: 20190614
  12. HELPOVIN [Concomitant]
     Dosage: QUANTITY 1, DAYS 6
     Dates: start: 20190401, end: 20190404
  13. PEMBROLIZUMAB. [Suspect]
     Active Substance: PEMBROLIZUMAB
     Dosage: ^1KUR^; QUANTITY 2, DAYS 1
     Dates: start: 20190402, end: 20190402
  14. PEMBROLIZUMAB. [Suspect]
     Active Substance: PEMBROLIZUMAB
     Dosage: QUANTITY 2, DAYS 1
     Dates: start: 20190425, end: 20190425
  15. IRCODON [Concomitant]
     Active Substance: OXYCODONE HYDROCHLORIDE
     Dosage: QUANTITY 1, DAYS 1
     Route: 048
     Dates: start: 20190402, end: 20190402
  16. SPATAM [Concomitant]
     Dosage: QUANTITY 1, DAYS 3
     Dates: start: 20190401, end: 20190402
  17. PETHIDINE HCL HANA [Concomitant]
     Dosage: QUANTITY 1, DAYS 1
     Dates: start: 20190402, end: 20190402

REACTIONS (7)
  - Adverse event [Unknown]
  - Adverse event [Unknown]
  - Urinary tract disorder [Unknown]
  - Intestinal fistula [Recovered/Resolved]
  - Drain placement [Unknown]
  - Product use in unapproved indication [Unknown]
  - Inappropriate schedule of product administration [Unknown]

NARRATIVE: CASE EVENT DATE: 201904
